FAERS Safety Report 11218246 (Version 2)
Quarter: 2017Q1

REPORT INFORMATION
  Report Type: Spontaneous
  Country: SE (occurrence: SE)
  Receive Date: 20150625
  Receipt Date: 20170330
  Transmission Date: 20170428
  Serious: Yes (Other)
  Sender: FDA-Public Use
  Company Number: SE-NOVOPROD-453168

PATIENT
  Age: 49 Year
  Sex: Female

DRUGS (1)
  1. NOVOFEM [Suspect]
     Active Substance: ESTRADIOL HEMIHYDRATE\NORETHINDRONE ACETATE
     Indication: MENOPAUSAL DISORDER
     Dosage: UNK
     Route: 065
     Dates: end: 20120613

REACTIONS (2)
  - Cerebral venous thrombosis [Unknown]
  - Cerebrovascular accident [Unknown]

NARRATIVE: CASE EVENT DATE: 20120615
